FAERS Safety Report 18432049 (Version 1)
Quarter: 2020Q4

REPORT INFORMATION
  Report Type: Spontaneous
  Country: US (occurrence: US)
  Receive Date: 20201027
  Receipt Date: 20201027
  Transmission Date: 20210114
  Serious: Yes (Death)
  Sender: FDA-Public Use
  Company Number: None

PATIENT
  Age: 71 Year
  Sex: Male
  Weight: 84 kg

DRUGS (22)
  1. DEXAMETHASONE 10 MG/ML [Concomitant]
     Dates: start: 20201002, end: 20201010
  2. DILTIAZEM 20 MG [Concomitant]
     Dates: start: 20201004, end: 20201004
  3. CEFTRIAXONE 1 G IV [Concomitant]
     Dates: start: 20201002, end: 20201006
  4. FENTANYL 50 MCG/ML [Concomitant]
     Active Substance: FENTANYL
     Dates: start: 20201009, end: 20201011
  5. HEPARIN [Concomitant]
     Active Substance: HEPARIN SODIUM
     Dates: start: 20201001, end: 20201005
  6. ZINC SULFATE 220 MG [Concomitant]
     Dates: start: 20201002, end: 20201011
  7. AZITHROMYCIN 500 MG [Concomitant]
     Active Substance: AZITHROMYCIN ANHYDROUS
     Dates: start: 20201002, end: 20201006
  8. ENOXAPARIN 80 MG [Concomitant]
     Dates: start: 20201005, end: 20201008
  9. FAMOTIDINE 20 MG [Concomitant]
     Active Substance: FAMOTIDINE
     Dates: start: 20201003, end: 20201009
  10. HYDROCODONE-HOMATROPINE 5-1.5 MG/5 ML [Concomitant]
     Dates: start: 20201003, end: 20201010
  11. ACETAMINOPHEN 650 MG PRN [Concomitant]
     Dates: start: 20201001, end: 20201010
  12. AMIODARONE 200 MG [Concomitant]
     Active Substance: AMIODARONE
     Dates: start: 20201003, end: 20201006
  13. FUROSEMIDE 20 MG [Concomitant]
     Active Substance: FUROSEMIDE
     Dates: start: 20201003, end: 20201006
  14. LOPERAMIDE CAPSULE 2 MG [Concomitant]
     Dates: start: 20201003, end: 20201011
  15. ASPIRIN 325 MG [Concomitant]
     Active Substance: ASPIRIN
     Dates: start: 20201004, end: 20201005
  16. REMDESIVIR. [Suspect]
     Active Substance: REMDESIVIR
     Indication: COVID-19
     Dosage: ?          OTHER FREQUENCY:200MGX1,100MG/D X4;?
     Route: 042
     Dates: start: 20201002, end: 20201006
  17. ALBUMIN HUMAN 5% IVPB 25 G [Concomitant]
     Dates: start: 20201009, end: 20201009
  18. PIPERACILIN-TAZOBACTAM 3.375 G [Concomitant]
     Dates: start: 20201001, end: 20201002
  19. METOPROLOL TARTRATE 25 MG [Concomitant]
     Active Substance: METOPROLOL TARTRATE
     Dates: start: 20201002, end: 20201004
  20. VASOPRESSIN 20 UNITS [Concomitant]
     Dates: start: 20201010, end: 20201011
  21. OXYCODONE 10 MG [Concomitant]
     Dates: start: 20201001, end: 20201010
  22. NOREPINEPHRINE 8 MG [Concomitant]
     Dates: start: 20201009, end: 20201011

REACTIONS (10)
  - Aspartate aminotransferase increased [None]
  - Retroperitoneal haemorrhage [None]
  - Cardiac arrest [None]
  - Blood pressure systolic decreased [None]
  - Tachypnoea [None]
  - Multiple organ dysfunction syndrome [None]
  - Blood creatinine increased [None]
  - Alanine aminotransferase increased [None]
  - Heart rate decreased [None]
  - Pulseless electrical activity [None]

NARRATIVE: CASE EVENT DATE: 20201009
